FAERS Safety Report 25137756 (Version 2)
Quarter: 2025Q2

REPORT INFORMATION
  Report Type: Spontaneous
  Country: GB (occurrence: GB)
  Receive Date: 20250329
  Receipt Date: 20250402
  Transmission Date: 20250717
  Serious: Yes (Hospitalization, Other)
  Sender: ACCORD
  Company Number: None

PATIENT
  Age: 62 Year
  Sex: Female
  Weight: 106 kg

DRUGS (18)
  1. BUSPIRONE HYDROCHLORIDE [Suspect]
     Active Substance: BUSPIRONE HYDROCHLORIDE
     Indication: Product used for unknown indication
     Dosage: 1 DOSAGE FORM, BID (POS)
  2. EZETIMIBE [Suspect]
     Active Substance: EZETIMIBE
     Indication: Product used for unknown indication
     Dosage: 1 DOSAGE FORM, QD (EACH MORNING 7X10MG IN MDS)
  3. ACETAMINOPHEN [Suspect]
     Active Substance: ACETAMINOPHEN
     Indication: Product used for unknown indication
     Dosage: 2 DOSAGE FORM, QID (FOUR TIMES A DAY WHEN REQUIRED 32X500MG)
  4. LANSOPRAZOLE [Suspect]
     Active Substance: LANSOPRAZOLE
     Indication: Product used for unknown indication
     Dosage: 1 DOSAGE FORM, QD (EACH MORNING 7X30MG IN MDS), STRENGTH: 30 MG
  5. ASPIRIN [Suspect]
     Active Substance: ASPIRIN
     Indication: Product used for unknown indication
     Dosage: 1 DOSAGE FORM, QD (EACH MORNING 7X75MG IN MDS)
  6. AMISULPRIDE [Suspect]
     Active Substance: AMISULPRIDE
     Indication: Product used for unknown indication
     Dosage: 1 DOSAGE FORM, QD (EACH MORNING 7X200MG IN MDS)
  7. FUROSEMIDE [Suspect]
     Active Substance: FUROSEMIDE
     Indication: Product used for unknown indication
     Dosage: 1 DOSAGE FORM, QD (EACH MORNING 7X20MG IN MDS)
  8. IVABRADINE HYDROCHLORIDE [Suspect]
     Active Substance: IVABRADINE HYDROCHLORIDE
     Indication: Product used for unknown indication
     Dosage: 1 DOSAGE FORM, BID (POS)
  9. LANTUS [Suspect]
     Active Substance: INSULIN GLARGINE
     Indication: Product used for unknown indication
     Dosage: UNK, QD (25UNITS ONCE DAILY WITH BREAKFAST WARD STOCK LABELLED + 2X3ML PENS)
  10. POLYETHYLENE GLYCOL 3350\POTASSIUM CHLORIDE\SODIUM BICARBONATE\SODIUM [Suspect]
     Active Substance: POLYETHYLENE GLYCOL 3350\POTASSIUM CHLORIDE\SODIUM BICARBONATE\SODIUM CHLORIDE
     Indication: Constipation
     Dosage: 1 DOSAGE FORM, QD (ONE SACHET ONCE A DAY WHEN REQUIRED FOR CONSTIPATION 20 SACHETS SUPPLIED)
  11. CLOZARIL [Suspect]
     Active Substance: CLOZAPINE
     Indication: Schizophrenia
     Dosage: 2 DOSAGE FORM, QD (AT BEDTIME 14X25MG IN MDS)
     Dates: start: 20150414
  12. METHENAMINE [Suspect]
     Active Substance: METHENAMINE
     Indication: Product used for unknown indication
     Dosage: 1 DOSAGE FORM, QD (IN THE MORNING) 14X1GRAM IN MDS (BATH ADDITIVE)
  13. METHENAMINE [Suspect]
     Active Substance: METHENAMINE
     Indication: Product used for unknown indication
     Dosage: 1 DOSAGE FORM, QD (AT BEDTIME)) 14X1GRAM IN MDS (BATH ADDITIVE)
  14. ACETAMINOPHEN [Suspect]
     Active Substance: ACETAMINOPHEN
     Indication: Product used for unknown indication
     Dosage: 8 DOSAGE FORM, QD (2 DOSAGE FORM, QID (FOUR TIMES A DAY WHEN REQUIRED 32X500MG, BLADDER IRRIGATION
  15. CLOZARIL [Suspect]
     Active Substance: CLOZAPINE
     Indication: Schizophrenia
     Dates: start: 20150414
  16. CLOZARIL [Suspect]
     Active Substance: CLOZAPINE
     Indication: Schizophrenia
     Dosage: 1 DOSAGE FORM, QD (AT BEDTIME 7X100MG IN MDS)
  17. CLOZARIL [Suspect]
     Active Substance: CLOZAPINE
     Indication: Schizophrenia
     Dosage: 3 DOSAGE FORM, QD (EACH MORNING 21X25MG IN MDS)
  18. CLOZARIL [Suspect]
     Active Substance: CLOZAPINE
     Indication: Schizophrenia
     Dosage: 2 DOSAGE FORM, QD (AT BEDTIME 14X25MG IN MDS)

REACTIONS (8)
  - Endocarditis enterococcal [Recovered/Resolved]
  - Cardiac failure [Unknown]
  - Aortic valve replacement [Unknown]
  - Mitral valve replacement [Unknown]
  - Emotional distress [Unknown]
  - Respiratory syncytial virus test positive [Unknown]
  - Hypotension [Unknown]
  - Fall [Unknown]

NARRATIVE: CASE EVENT DATE: 20240101
